FAERS Safety Report 17028573 (Version 1)
Quarter: 2019Q4

REPORT INFORMATION
  Report Type: Report from Study
  Country: US (occurrence: US)
  Receive Date: 20191113
  Receipt Date: 20191113
  Transmission Date: 20200122
  Serious: Yes (Other)
  Sender: FDA-Public Use
  Company Number: US-BEH-2019109135

PATIENT
  Age: 67 Year
  Sex: Female
  Weight: 68.03 kg

DRUGS (1)
  1. SET, I.V. FLUID TRANSFER/ NEEDLE, HYPODERMIC, SINGLE LUMEN [Suspect]
     Active Substance: .ALPHA.1-PROTEINASE INHIBITOR HUMAN
     Indication: ALPHA-1 ANTI-TRYPSIN DEFICIENCY
     Dosage: 60 UNK, QW
     Route: 042

REACTIONS (1)
  - Atypical pneumonia [Recovered/Resolved]

NARRATIVE: CASE EVENT DATE: 20190927
